FAERS Safety Report 6123553-4 (Version None)
Quarter: 2009Q1

REPORT INFORMATION
  Report Type: 
  Country: None (occurrence: None)
  Receive Date: 20090318
  Receipt Date: 20090313
  Transmission Date: 20090719
  Serious: No
  Sender: FDA-Public Use
  Company Number: CA-BRISTOL-MYERS SQUIBB COMPANY-14297493

PATIENT
  Age: 57 Year
  Sex: Female

DRUGS (11)
  1. ORENCIA [Suspect]
     Indication: RHEUMATOID ARTHRITIS
     Dosage: THERAPY DATES:24MAR,08APR,21APR,20MAY,16JUN,14JUL,22SEP,20OCT,19NOV,22DEC,20JAN09,18FEB09.
     Route: 042
     Dates: start: 20080324
  2. METHOTREXATE SODIUM [Suspect]
     Dosage: INJ
  3. PREDNISONE [Suspect]
  4. METFORMIN HCL [Concomitant]
  5. ACTOS [Concomitant]
  6. NEXIUM [Concomitant]
  7. COZAAR [Concomitant]
  8. FOLIC ACID [Concomitant]
  9. APO-AMITRIPTYLINE [Concomitant]
  10. CRESTOR [Concomitant]
  11. VENTOLIN [Concomitant]

REACTIONS (5)
  - EYE INFECTION [None]
  - GASTROENTERITIS VIRAL [None]
  - RASH [None]
  - SWELLING FACE [None]
  - TOOTHACHE [None]
